FAERS Safety Report 10757305 (Version 1)
Quarter: 2015Q1

REPORT INFORMATION
  Report Type: Spontaneous
  Country: TW (occurrence: TW)
  Receive Date: 20150203
  Receipt Date: 20150203
  Transmission Date: 20150721
  Serious: Yes (Death, Other)
  Sender: FDA-Public Use
  Company Number: TW-CIPLA LTD.-2015TW00756

PATIENT

DRUGS (1)
  1. IRINOTECAN [Suspect]
     Active Substance: IRINOTECAN
     Indication: PANCREATIC NEUROENDOCRINE TUMOUR
     Dosage: 60 MG/M2 (LEVEL I) AS A 90-MIN INTRAVENOUS INFUSION, EVERY 21 DAYS
     Route: 042

REACTIONS (6)
  - Coagulopathy [Fatal]
  - Febrile neutropenia [Unknown]
  - Septic shock [Fatal]
  - Diarrhoea [Unknown]
  - Thrombocytopenia [Unknown]
  - Acute respiratory distress syndrome [Fatal]
